FAERS Safety Report 9210528 (Version 2)
Quarter: 2013Q4

REPORT INFORMATION
  Report Type: Spontaneous
  Country: US (occurrence: US)
  Receive Date: 20130404
  Receipt Date: 20131209
  Transmission Date: 20140711
  Serious: Yes (Other)
  Sender: FDA-Public Use
  Company Number: US-BAYER-2013-040266

PATIENT
  Age: 24 Year
  Sex: Female

DRUGS (12)
  1. YAZ [Suspect]
     Dosage: UNK
     Dates: start: 200801
  2. YASMIN [Suspect]
     Dosage: UNK
     Dates: start: 200801
  3. HYDROCODONE W/APAP [Concomitant]
     Indication: PAIN
     Dosage: 5MG/500MG 1 TO 2 Q 6 H PRN
     Route: 048
  4. HYDROCODONE W/APAP [Concomitant]
     Indication: PAIN
     Dosage: 7.5 MG/500MG ONE TO TWO Q 4 H PRN
     Route: 048
  5. SUCRALFATE [Concomitant]
     Dosage: 1 GM 1 BEFORE EVERY MEAL AND HS
     Route: 048
  6. PROMETHAZINE [Concomitant]
     Indication: NAUSEA
     Dosage: 25 MG, 1 TO 2 Q 4 H PRN
     Route: 048
  7. PROMETHAZINE [Concomitant]
     Indication: VOMITING
  8. ZEGERID [Concomitant]
     Dosage: 40 MG, DAILY
  9. ZEGERID [Concomitant]
  10. MIDRIN [Concomitant]
     Dosage: UNK, PRN
  11. Z-PAK [Concomitant]
  12. LO/OVRAL [Concomitant]

REACTIONS (6)
  - Gallbladder injury [Recovered/Resolved]
  - Cholecystitis chronic [None]
  - Pain [Recovered/Resolved]
  - Injury [Recovered/Resolved]
  - Fear of disease [None]
  - Pain [None]
